FAERS Safety Report 4838064-3 (Version None)
Quarter: 2005Q4

REPORT INFORMATION
  Report Type: 
  Country: None (occurrence: None)
  Receive Date: 20051128
  Receipt Date: 20051118
  Transmission Date: 20060501
  Serious: Yes (Hospitalization)
  Sender: FDA-Public Use
  Company Number: US-ABBOTT-05P-163-0317839-00

PATIENT
  Sex: Female
  Weight: 49.032 kg

DRUGS (5)
  1. HUMIRA [Suspect]
     Indication: RHEUMATOID ARTHRITIS
     Route: 058
     Dates: start: 20041101
  2. PREDNISONE [Concomitant]
     Indication: RHEUMATOID ARTHRITIS
     Route: 048
     Dates: start: 20050101
  3. DARVOCET [Concomitant]
     Indication: RHEUMATOID ARTHRITIS
     Route: 048
  4. WARFARIN SODIUM [Concomitant]
     Indication: THROMBOSIS PROPHYLAXIS
     Route: 048
     Dates: start: 20050501
  5. CALCIUM GLUCONATE [Concomitant]
     Indication: MINERAL SUPPLEMENTATION
     Route: 048
     Dates: start: 20050501

REACTIONS (5)
  - FALL [None]
  - HYPOAESTHESIA [None]
  - INJECTION SITE SWELLING [None]
  - PAIN IN EXTREMITY [None]
  - THROMBOSIS [None]
